FAERS Safety Report 4911209-2 (Version None)
Quarter: 2006Q1

REPORT INFORMATION
  Report Type: 
  Country: None (occurrence: None)
  Receive Date: 20060214
  Receipt Date: 20060202
  Transmission Date: 20060701
  Serious: Yes (Other)
  Sender: FDA-Public Use
  Company Number: SE-BRISTOL-MYERS SQUIBB COMPANY-13279948

PATIENT
  Age: 59 Year
  Sex: Male

DRUGS (10)
  1. ABILIFY [Suspect]
     Indication: DEPRESSION
     Dates: start: 20050223, end: 20050226
  2. ABILIFY [Suspect]
     Indication: PSYCHOTIC DISORDER
     Dates: start: 20050223, end: 20050226
  3. ABILIFY [Suspect]
     Indication: DELUSION
     Dates: start: 20050223, end: 20050226
  4. TRIATEC [Concomitant]
  5. OXASCAND [Concomitant]
  6. ZOLOFT [Concomitant]
  7. REMERON [Concomitant]
  8. HEMINEVRIN [Concomitant]
     Dosage: DOSE VALUE:  50 MG/ML 18 ML
  9. FUROSEMIDE [Concomitant]
  10. FRAGMIN [Concomitant]
     Dosage: DOSE VALUE:  5000 IE

REACTIONS (2)
  - DIZZINESS [None]
  - FALL [None]
